FAERS Safety Report 14898474 (Version 9)
Quarter: 2018Q3

REPORT INFORMATION
  Report Type: Spontaneous
  Country: DE (occurrence: DE)
  Receive Date: 20180515
  Receipt Date: 20180718
  Transmission Date: 20181010
  Serious: Yes (Hospitalization, Other)
  Sender: FDA-Public Use
  Company Number: PHHY2018DE008001

PATIENT
  Age: 59 Year
  Sex: Female

DRUGS (3)
  1. DICLOFENAC [Suspect]
     Active Substance: DICLOFENAC
     Indication: PRODUCT USED FOR UNKNOWN INDICATION
     Dosage: UNK (3 X WEEK)
     Route: 065
  2. IBUPROFENO [Suspect]
     Active Substance: IBUPROFEN
     Indication: PRODUCT USED FOR UNKNOWN INDICATION
     Dosage: 600 MG, Q3W
     Route: 065
  3. MARCUMAR [Suspect]
     Active Substance: PHENPROCOUMON
     Indication: PRODUCT USED FOR UNKNOWN INDICATION
     Dosage: 3 MG, UNK (NACH INR)
     Route: 065

REACTIONS (7)
  - Haematochezia [Unknown]
  - Dyspnoea [Unknown]
  - Dizziness [Unknown]
  - Medication monitoring error [Unknown]
  - Drug prescribing error [Unknown]
  - General physical health deterioration [Unknown]
  - Anaemia [Unknown]
